FAERS Safety Report 5537153-8 (Version None)
Quarter: 2007Q4

REPORT INFORMATION
  Report Type: 
  Country: None (occurrence: None)
  Receive Date: 20071207
  Receipt Date: 20061206
  Transmission Date: 20080405
  Serious: Yes (Hospitalization)
  Sender: FDA-Public Use
  Company Number: US-AMGEN-US199169

PATIENT
  Sex: Female

DRUGS (12)
  1. ENBREL [Suspect]
     Indication: RHEUMATOID ARTHRITIS
     Route: 058
     Dates: start: 20041220
  2. ALLOPURINOL [Concomitant]
  3. SYNTHROID [Concomitant]
  4. SINGULAIR [Concomitant]
  5. NEXIUM [Concomitant]
  6. AMBIEN [Concomitant]
  7. VASOTEC [Concomitant]
  8. ULTRAM [Concomitant]
  9. METHOTREXATE [Concomitant]
  10. LEXAPRO [Concomitant]
  11. SOMA [Concomitant]
  12. QUININE [Concomitant]

REACTIONS (2)
  - ABDOMINAL INFECTION [None]
  - STAPHYLOCOCCAL INFECTION [None]
